FAERS Safety Report 9324251 (Version 1)
Quarter: 2013Q2

REPORT INFORMATION
  Report Type: Spontaneous
  Country: GB (occurrence: GB)
  Receive Date: 20130603
  Receipt Date: 20130603
  Transmission Date: 20140414
  Serious: Yes (Other)
  Sender: FDA-Public Use
  Company Number: PHHY2013GB053364

PATIENT
  Age: 82 Year
  Sex: Female

DRUGS (1)
  1. CEFUROXIME [Suspect]
     Indication: CATARACT OPERATION
     Route: 021
     Dates: start: 20130424, end: 20130424

REACTIONS (1)
  - Corneal opacity [Recovered/Resolved]
